FAERS Safety Report 17166433 (Version 1)
Quarter: 2019Q4

REPORT INFORMATION
  Report Type: Spontaneous
  Country: RU (occurrence: RU)
  Receive Date: 20191217
  Receipt Date: 20191217
  Transmission Date: 20200122
  Serious: Yes (Other)
  Sender: FDA-Public Use
  Company Number: RU-PURDUE-USA-2019-0149367

PATIENT
  Age: 26 Year
  Sex: Female

DRUGS (1)
  1. ZOLPIDEM TARTRATE. [Suspect]
     Active Substance: ZOLPIDEM TARTRATE
     Indication: THERAPEUTIC RESPONSE UNEXPECTED
     Dosage: 10 MG, GASTROSTOMY
     Route: 050

REACTIONS (9)
  - Epilepsy [Unknown]
  - Muscle tone disorder [Unknown]
  - Off label use [Unknown]
  - Chills [Unknown]
  - Therapeutic response unexpected [Unknown]
  - Agitation [Unknown]
  - Facial spasm [Unknown]
  - Gaze palsy [Unknown]
  - Extrapyramidal disorder [Unknown]

NARRATIVE: CASE EVENT DATE: 2008
